FAERS Safety Report 16046864 (Version 3)
Quarter: 2019Q4

REPORT INFORMATION
  Report Type: Spontaneous
  Country: US (occurrence: US)
  Receive Date: 20190307
  Receipt Date: 20191230
  Transmission Date: 20200122
  Serious: No
  Sender: FDA-Public Use
  Company Number: US-PFIZER INC-2019098156

PATIENT
  Age: 11 Year
  Sex: Male

DRUGS (2)
  1. GENOTROPIN [Suspect]
     Active Substance: SOMATROPIN
     Dosage: 1.2 MG, ALTERNATE DAY [ALTERNATE 1MG WITH 1.2MG, 7 DAYS A WEEK]
     Dates: start: 20170206
  2. GENOTROPIN [Suspect]
     Active Substance: SOMATROPIN
     Dosage: 1 MG, ALTERNATE DAY [ALTERNATE 1MG WITH 1.2MG, 7 DAYS A WEEK]
     Dates: start: 20170206

REACTIONS (4)
  - Dry skin [Unknown]
  - Headache [Unknown]
  - Scoliosis [Unknown]
  - Glycosylated haemoglobin increased [Unknown]

NARRATIVE: CASE EVENT DATE: 20180302
